FAERS Safety Report 8747094 (Version 2)
Quarter: 2012Q4

REPORT INFORMATION
  Report Type: 
  Country: US (occurrence: US)
  Receive Date: 20120827
  Receipt Date: 20121126
  Transmission Date: 20130627
  Serious: Yes (Hospitalization, Other)
  Sender: FDA-Public Use
  Company Number: US-ASTRAZENECA-2012SE57848

PATIENT
  Age: 53 Year
  Sex: Female
  Weight: 84.4 kg

DRUGS (9)
  1. SEROQUEL [Suspect]
     Indication: BIPOLAR DISORDER
     Route: 048
     Dates: start: 2002
  2. DEPAKOTE [Concomitant]
  3. LEVOTHYROID [Concomitant]
  4. TRIZIDINE [Concomitant]
  5. LAXATIVE [Concomitant]
  6. TRAMADOL [Concomitant]
     Indication: PAIN
  7. PRAVASTATIN [Concomitant]
     Indication: BLOOD CHOLESTEROL ABNORMAL
  8. LISPRINOL [Concomitant]
     Indication: HYPERTENSION
  9. LEVOTHYROXINE [Concomitant]

REACTIONS (5)
  - Intervertebral disc protrusion [Unknown]
  - Abasia [Unknown]
  - Fall [Unknown]
  - Joint injury [Unknown]
  - Back injury [Unknown]
